FAERS Safety Report 4695539-8 (Version None)
Quarter: 2005Q2

REPORT INFORMATION
  Report Type: 
  Country: None (occurrence: None)
  Receive Date: 20050523
  Receipt Date: 20050509
  Transmission Date: 20051028
  Serious: Yes (Other)
  Sender: FDA-Public Use
  Company Number: 2005AC00711

PATIENT
  Age: 69 Year
  Sex: Male

DRUGS (2)
  1. CASODEX [Suspect]
     Indication: PROSTATE CANCER
  2. BUSERELIN [Suspect]
     Indication: PROSTATE CANCER
     Dosage: TWO INJECTIONS

REACTIONS (1)
  - RELAPSING POLYCHONDRITIS [None]
